FAERS Safety Report 9962798 (Version 2)
Quarter: 2014Q1

REPORT INFORMATION
  Report Type: Report from Study
  Country: US (occurrence: US)
  Receive Date: 20140305
  Receipt Date: 20140305
  Transmission Date: 20141002
  Serious: No
  Sender: FDA-Public Use
  Company Number: US-ABBVIE-13P-163-1076046-00

PATIENT
  Age: 79 Year
  Sex: Female

DRUGS (21)
  1. HUMIRA [Suspect]
     Indication: RHEUMATOID ARTHRITIS
     Dates: start: 20130422, end: 20130616
  2. METHOTREXATE [Suspect]
     Indication: RHEUMATOID ARTHRITIS
     Route: 048
  3. OXAZEPAM [Concomitant]
     Indication: NEUROPATHY PERIPHERAL
     Dosage: AS REQUIRED
     Route: 048
  4. SINGULAIR [Concomitant]
     Indication: HYPERSENSITIVITY
     Route: 048
  5. CALCON [Concomitant]
     Indication: PRODUCT USED FOR UNKNOWN INDICATION
  6. CYCLOBEN [Concomitant]
     Indication: PAIN
  7. NEURONTIN [Concomitant]
     Indication: NERVE INJURY
     Route: 048
  8. NEURONTIN [Concomitant]
     Indication: NEUROPATHY PERIPHERAL
  9. CALCIUM [Concomitant]
     Indication: OSTEOPOROSIS
     Route: 048
  10. VITAMIN D [Concomitant]
     Indication: PRODUCT USED FOR UNKNOWN INDICATION
     Route: 048
  11. TEMAZEPAM [Concomitant]
     Indication: INSOMNIA
     Dosage: AT BEDTIME
  12. DEXILANT [Concomitant]
     Indication: GASTROOESOPHAGEAL REFLUX DISEASE
     Dosage: EVERY MORNING
  13. MIRAPEX [Concomitant]
     Indication: RESTLESS LEGS SYNDROME
     Dosage: 1 MG, 2 TABS; AT BEDTIME
     Route: 048
  14. SEROQUEL [Concomitant]
     Indication: INSOMNIA
     Route: 048
  15. FOLIC ACID [Concomitant]
     Indication: PRODUCT USED FOR UNKNOWN INDICATION
     Route: 048
  16. FUROSEMIDE [Concomitant]
     Indication: PRODUCT USED FOR UNKNOWN INDICATION
     Route: 048
  17. VICODIN [Concomitant]
     Indication: PRODUCT USED FOR UNKNOWN INDICATION
  18. LYRICA [Concomitant]
     Indication: PRODUCT USED FOR UNKNOWN INDICATION
     Dosage: 50MG
     Route: 048
  19. POTASSIUM [Concomitant]
     Indication: PRODUCT USED FOR UNKNOWN INDICATION
     Dosage: 2 TABLETS DAILY
     Route: 048
  20. FLEXERIL [Concomitant]
     Indication: BACK PAIN
     Dosage: 10 MG DAILY, AS NEEDED, TAKES ONCE OR TWICE A MONTH
  21. FLEXERIL [Concomitant]
     Indication: MUSCLE SPASMS

REACTIONS (12)
  - Spinal column stenosis [Not Recovered/Not Resolved]
  - Musculoskeletal pain [Not Recovered/Not Resolved]
  - Spinal osteoarthritis [Not Recovered/Not Resolved]
  - Stomatitis [Not Recovered/Not Resolved]
  - Oropharyngeal pain [Not Recovered/Not Resolved]
  - Candida infection [Recovering/Resolving]
  - Fall [Recovering/Resolving]
  - Musculoskeletal chest pain [Recovering/Resolving]
  - Fall [Unknown]
  - Fall [Unknown]
  - Excoriation [Unknown]
  - Contusion [Unknown]
